FAERS Safety Report 4457944-4 (Version None)
Quarter: 2004Q3

REPORT INFORMATION
  Report Type: 
  Country: None (occurrence: None)
  Receive Date: 20040923
  Receipt Date: 20040923
  Transmission Date: 20050211
  Serious: No
  Sender: FDA-Public Use
  Company Number: None

PATIENT

DRUGS (2)
  1. NORVASC [Suspect]
     Dosage: TABLET
  2. NAVANE [Suspect]
     Dosage: CAPSULE

REACTIONS (3)
  - MEDICATION ERROR [None]
  - MENTAL STATUS CHANGES [None]
  - TARDIVE DYSKINESIA [None]
